FAERS Safety Report 8234903-7 (Version None)
Quarter: 2012Q1

REPORT INFORMATION
  Report Type: 
  Country: None (occurrence: None)
  Receive Date: 20120326
  Receipt Date: 20120320
  Transmission Date: 20120608
  Serious: Yes (Other)
  Sender: FDA-Public Use
  Company Number: US-PFIZER INC-2012072450

PATIENT
  Sex: Male

DRUGS (2)
  1. ALPHAGAN [Concomitant]
  2. XALATAN [Suspect]
     Dosage: UNK

REACTIONS (4)
  - DRY EYE [None]
  - CEREBROVASCULAR ACCIDENT [None]
  - OPEN ANGLE GLAUCOMA [None]
  - EYE DISCHARGE [None]
